FAERS Safety Report 6491874-1 (Version None)
Quarter: 2009Q4

REPORT INFORMATION
  Report Type: 
  Country: None (occurrence: None)
  Receive Date: 20091208
  Receipt Date: 20091123
  Transmission Date: 20100525
  Serious: Yes (Other)
  Sender: FDA-Public Use
  Company Number: AUR-APL-2009-01386

PATIENT

DRUGS (2)
  1. BISOPROLOL [Suspect]
  2. AMLODIPINE [Concomitant]

REACTIONS (1)
  - HALLUCINATION, VISUAL [None]
